FAERS Safety Report 9834797 (Version 1)
Quarter: 2014Q1

REPORT INFORMATION
  Report Type: Spontaneous
  Country: US (occurrence: US)
  Receive Date: 20140122
  Receipt Date: 20140122
  Transmission Date: 20141002
  Serious: Yes (Other)
  Sender: FDA-Public Use
  Company Number: US-PFIZER INC-2014016118

PATIENT
  Sex: Female

DRUGS (2)
  1. GABAPENTIN [Suspect]
     Dosage: UNK
  2. NEURONTIN [Suspect]
     Dosage: UNK

REACTIONS (5)
  - Terminal state [Recovered/Resolved]
  - Dysstasia [Unknown]
  - Diplegia [Recovered/Resolved]
  - Joint range of motion decreased [Recovered/Resolved]
  - Muscular weakness [Recovered/Resolved]
